FAERS Safety Report 16162599 (Version 1)
Quarter: 2019Q2

REPORT INFORMATION
  Report Type: Spontaneous
  Country: US (occurrence: US)
  Receive Date: 20190302
  Receipt Date: 20190302
  Transmission Date: 20190711
  Serious: No
  Sender: FDA-Public Use
  Company Number: None

PATIENT
  Age: 41 Year
  Sex: Male

DRUGS (1)
  1. PREGNYL [Suspect]
     Active Substance: CHORIOGONADOTROPIN ALFA
     Indication: TESTICULAR DISORDER
     Route: 058
     Dates: start: 201903

REACTIONS (2)
  - Product dose omission [None]
  - Product prescribing error [None]

NARRATIVE: CASE EVENT DATE: 20190302
